FAERS Safety Report 4840371-5 (Version None)
Quarter: 2005Q4

REPORT INFORMATION
  Report Type: 
  Country: None (occurrence: None)
  Receive Date: 20051025
  Receipt Date: 20050620
  Transmission Date: 20060501
  Serious: Yes (Hospitalization)
  Sender: FDA-Public Use
  Company Number: 2005-BP-10417BP

PATIENT
  Sex: Female

DRUGS (1)
  1. COMBIVENT [Suspect]
     Indication: DYSPNOEA
     Dosage: 2 PUF (SEE TEXT,18MCG/103MCG, 2 PUFFS PRN),IH
     Dates: start: 20040101

REACTIONS (1)
  - DYSPNOEA [None]
